FAERS Safety Report 12634473 (Version 2)
Quarter: 2016Q3

REPORT INFORMATION
  Report Type: Report from Study
  Country: US (occurrence: US)
  Receive Date: 20160809
  Receipt Date: 20160906
  Transmission Date: 20161109
  Serious: Yes (Hospitalization)
  Sender: FDA-Public Use
  Company Number: US-BAYER-2016-141959

PATIENT
  Sex: Male
  Weight: 129.71 kg

DRUGS (3)
  1. ADEMPAS [Suspect]
     Active Substance: RIOCIGUAT
     Indication: PULMONARY ARTERIAL HYPERTENSION
     Dosage: UNK
     Dates: start: 20141230
  2. ADEMPAS [Suspect]
     Active Substance: RIOCIGUAT
     Indication: PULMONARY ARTERIAL HYPERTENSION
     Dosage: 1 MG, TID
     Route: 048
  3. ADEMPAS [Suspect]
     Active Substance: RIOCIGUAT
     Indication: PULMONARY ARTERIAL HYPERTENSION
     Dosage: 1 MG, TID (LAST SHIPPED 21-JUL-2016)
     Route: 048

REACTIONS (10)
  - Asthenia [Unknown]
  - Headache [Unknown]
  - Acute kidney injury [Unknown]
  - Hypotension [Unknown]
  - Chest pain [Unknown]
  - Neck pain [None]
  - Pneumonia [Unknown]
  - Headache [None]
  - Hospitalisation [Unknown]
  - Chest discomfort [None]
